FAERS Safety Report 9396287 (Version 1)
Quarter: 2013Q3

REPORT INFORMATION
  Report Type: Spontaneous
  Country: US (occurrence: US)
  Receive Date: 20130711
  Receipt Date: 20130711
  Transmission Date: 20140515
  Serious: No
  Sender: FDA-Public Use
  Company Number: US-PFIZER INC-2013203392

PATIENT
  Age: 63 Year
  Sex: Female
  Weight: 49.89 kg

DRUGS (3)
  1. CHANTIX [Suspect]
     Indication: SMOKING CESSATION THERAPY
     Dosage: UNK
     Route: 048
     Dates: start: 20130704
  2. WELLBUTRIN [Interacting]
     Dosage: UNK, 1X/DAY
  3. SYNTHROID [Concomitant]
     Indication: HYPOTHYROIDISM
     Dosage: UNK

REACTIONS (2)
  - Feeling jittery [Unknown]
  - Drug interaction [Unknown]
